FAERS Safety Report 16041013 (Version 1)
Quarter: 2019Q1

REPORT INFORMATION
  Report Type: Spontaneous
  Country: GR (occurrence: GR)
  Receive Date: 20190306
  Receipt Date: 20190306
  Transmission Date: 20190418
  Serious: Yes (Other)
  Sender: FDA-Public Use
  Company Number: GR-SA-2019SA060357

PATIENT
  Age: 66 Year
  Sex: Female
  Weight: 80 kg

DRUGS (2)
  1. AUBAGIO [Suspect]
     Active Substance: TERIFLUNOMIDE
     Indication: IMMUNOSUPPRESSION
     Dosage: 1 DF, QD
     Route: 048
     Dates: start: 20160201, end: 20181001
  2. MIOREL [THIOCOLCHICOSIDE] [Concomitant]

REACTIONS (1)
  - Breast cancer [Recovering/Resolving]

NARRATIVE: CASE EVENT DATE: 20160201
